FAERS Safety Report 7797812-3 (Version None)
Quarter: 2011Q4

REPORT INFORMATION
  Report Type: 
  Country: None (occurrence: None)
  Receive Date: 20111005
  Receipt Date: 20110930
  Transmission Date: 20120403
  Serious: No
  Sender: FDA-Public Use
  Company Number: US-PFIZER INC-2011234248

PATIENT
  Sex: Female

DRUGS (1)
  1. PRISTIQ [Suspect]
     Dosage: UNK
     Dates: start: 20110101

REACTIONS (9)
  - VAGINAL DISCHARGE [None]
  - ABDOMINAL DISTENSION [None]
  - VAGINAL HAEMORRHAGE [None]
  - ADNEXA UTERI PAIN [None]
  - PELVIC DISCOMFORT [None]
  - CONSTIPATION [None]
  - PAIN [None]
  - DIARRHOEA [None]
  - PELVIC PAIN [None]
